FAERS Safety Report 6977580-5 (Version None)
Quarter: 2010Q3

REPORT INFORMATION
  Report Type: 
  Country: None (occurrence: None)
  Receive Date: 20100913
  Receipt Date: 20100903
  Transmission Date: 20110219
  Serious: Yes (Hospitalization)
  Sender: FDA-Public Use
  Company Number: US-BIOGENIDEC-2010BI023120

PATIENT
  Age: 69 Year
  Sex: Female

DRUGS (5)
  1. TYSABRI [Suspect]
     Indication: MULTIPLE SCLEROSIS
     Route: 042
     Dates: start: 20090301, end: 20100501
  2. DITROPAN [Concomitant]
     Indication: INCONTINENCE
     Dates: start: 20070101
  3. AMITRIPTYLINE HCL [Concomitant]
     Dates: start: 20070101
  4. BACLOFEN [Concomitant]
     Indication: MUSCLE SPASMS
     Dates: start: 20070101
  5. PROVIGIL [Concomitant]
     Indication: FATIGUE
     Dates: start: 20080101

REACTIONS (8)
  - ABASIA [None]
  - ASTHENIA [None]
  - BALANCE DISORDER [None]
  - DEPRESSED MOOD [None]
  - FALL [None]
  - MULTIPLE SCLEROSIS [None]
  - PAIN [None]
  - SPINAL COMPRESSION FRACTURE [None]
